FAERS Safety Report 9477837 (Version 1)
Quarter: 2013Q3

REPORT INFORMATION
  Report Type: Spontaneous
  Country: US (occurrence: None)
  Receive Date: 20130826
  Receipt Date: 20130826
  Transmission Date: 20140515
  Serious: Yes (Disabling, Other)
  Sender: FDA-Public Use
  Company Number: None

PATIENT
  Age: 29 Year
  Sex: Male
  Weight: 79.38 kg

DRUGS (1)
  1. SUBOXONE [Suspect]
     Indication: DRUG DEPENDENCE
     Dosage: 2 STRIPS
     Route: 048

REACTIONS (4)
  - Emotional disorder [None]
  - Depressed mood [None]
  - Fear [None]
  - Feeling abnormal [None]
